FAERS Safety Report 23249955 (Version 1)
Quarter: 2023Q4

REPORT INFORMATION
  Report Type: Spontaneous
  Country: FR (occurrence: FR)
  Receive Date: 20231201
  Receipt Date: 20231201
  Transmission Date: 20240110
  Serious: Yes (Congenital Anomaly)
  Sender: FDA-Public Use
  Company Number: None

PATIENT
  Sex: Male

DRUGS (6)
  1. AZITHROMYCIN [Suspect]
     Active Substance: AZITHROMYCIN
     Indication: Prophylaxis against transplant rejection
     Route: 064
     Dates: start: 202002
  2. BACTRIM [Suspect]
     Active Substance: SULFAMETHOXAZOLE\TRIMETHOPRIM
     Indication: Prophylaxis against transplant rejection
     Route: 064
     Dates: start: 2022
  3. PREDNISONE [Suspect]
     Active Substance: PREDNISONE
     Indication: Prophylaxis against transplant rejection
     Dosage: 5.000MG QD
     Route: 064
     Dates: start: 2019
  4. AZATHIOPRINE SODIUM [Suspect]
     Active Substance: AZATHIOPRINE SODIUM
     Indication: Prophylaxis against transplant rejection
     Dosage: 50.000MG QD
     Route: 064
     Dates: start: 2019
  5. METHIONINE [Suspect]
     Active Substance: METHIONINE
     Indication: Alveolar proteinosis
     Dosage: 1800.000MG TID
     Route: 064
     Dates: start: 2019
  6. TACROLIMUS [Suspect]
     Active Substance: TACROLIMUS
     Indication: Prophylaxis against transplant rejection
     Route: 064
     Dates: start: 2019

REACTIONS (6)
  - Ureteric dilatation [Recovering/Resolving]
  - Foetal growth restriction [Recovered/Resolved]
  - Maternal exposure during pregnancy [Recovered/Resolved]
  - Leukopenia [Recovering/Resolving]
  - Pyelocaliectasis [Recovering/Resolving]
  - Respiratory distress [Recovered/Resolved]

NARRATIVE: CASE EVENT DATE: 20221116
